FAERS Safety Report 9918226 (Version 1)
Quarter: 2014Q1

REPORT INFORMATION
  Report Type: Report from Study
  Country: US (occurrence: US)
  Receive Date: 20140224
  Receipt Date: 20140224
  Transmission Date: 20141002
  Serious: Yes (Life-Threatening, Hospitalization)
  Sender: FDA-Public Use
  Company Number: US-ROCHE-1350468

PATIENT
  Sex: Female

DRUGS (2)
  1. TOCILIZUMAB [Suspect]
     Indication: INFLAMMATION
     Route: 042
  2. TOCILIZUMAB [Suspect]
     Route: 042
     Dates: start: 20140204

REACTIONS (5)
  - Sensation of heaviness [Unknown]
  - Malaise [Unknown]
  - Blood pressure decreased [Unknown]
  - Palpitations [Unknown]
  - Myocardial infarction [Unknown]
